FAERS Safety Report 24152446 (Version 1)
Quarter: 2024Q3

REPORT INFORMATION
  Report Type: Spontaneous
  Country: PT (occurrence: PT)
  Receive Date: 20240730
  Receipt Date: 20240730
  Transmission Date: 20241017
  Serious: Yes (Hospitalization, Other)
  Sender: TEVA
  Company Number: PT-TEVA-VS-3223214

PATIENT
  Age: 65 Year
  Sex: Female

DRUGS (3)
  1. IBUPROFEN [Suspect]
     Active Substance: IBUPROFEN
     Indication: Toothache
     Route: 065
  2. DEXKETOPROFEN [Suspect]
     Active Substance: DEXKETOPROFEN
     Indication: Toothache
     Route: 065
  3. ACEMETACIN [Suspect]
     Active Substance: ACEMETACIN
     Indication: Toothache
     Route: 065

REACTIONS (3)
  - Intentional product misuse [Unknown]
  - Agranulocytosis [Recovered/Resolved]
  - Nephropathy toxic [Recovered/Resolved]
